FAERS Safety Report 7387556-4 (Version None)
Quarter: 2011Q1

REPORT INFORMATION
  Report Type: 
  Country: None (occurrence: None)
  Receive Date: 20110331
  Receipt Date: 20110316
  Transmission Date: 20110831
  Serious: Yes (Hospitalization)
  Sender: FDA-Public Use
  Company Number: US-BIOGENIDEC-2011BI003829

PATIENT
  Age: 56 Year
  Sex: Female
  Weight: 72 kg

DRUGS (2)
  1. AVONEX [Suspect]
     Route: 030
  2. AVONEX [Suspect]
     Indication: MULTIPLE SCLEROSIS
     Route: 030
     Dates: start: 19990101

REACTIONS (6)
  - MUSCULAR WEAKNESS [None]
  - BONE CYST [None]
  - KNEE ARTHROPLASTY [None]
  - NEUROPATHY PERIPHERAL [None]
  - DERMATITIS CONTACT [None]
  - PAIN IN EXTREMITY [None]
